FAERS Safety Report 5216812-0 (Version None)
Quarter: 2007Q1

REPORT INFORMATION
  Report Type: 
  Country: None (occurrence: None)
  Receive Date: 20070119
  Receipt Date: 20070116
  Transmission Date: 20070707
  Serious: Yes (Death, Other)
  Sender: FDA-Public Use
  Company Number: 163-21880-06050328

PATIENT
  Age: 74 Year
  Sex: Female

DRUGS (13)
  1. REVLIMID [Suspect]
     Indication: MYELODYSPLASTIC SYNDROME
     Dosage: 10 MG, 1 IN 1 D, ORAL5 MG, 1 IN 1 D, PER ORAL
     Route: 048
     Dates: start: 20060407, end: 20060514
  2. REVLIMID [Suspect]
     Indication: MYELODYSPLASTIC SYNDROME
     Dosage: 10 MG, 1 IN 1 D, ORAL5 MG, 1 IN 1 D, PER ORAL
     Route: 048
     Dates: start: 20060515, end: 20061006
  3. DECITABINE (DECITABINE) [Suspect]
     Indication: DRUG USE FOR UNKNOWN INDICATION
     Dates: start: 20060701, end: 20060901
  4. ACIPHEX [Concomitant]
  5. TOPROL-XL [Concomitant]
  6. CLARITIN [Concomitant]
  7. ZOFRAN [Concomitant]
  8. FLONASE [Concomitant]
  9. LASIX [Concomitant]
  10. ZOLOFT [Concomitant]
  11. MULTIVITAMIN [Concomitant]
  12. FOLIC ACID [Concomitant]
  13. BACTRIM [Concomitant]

REACTIONS (5)
  - CARDIAC FAILURE CONGESTIVE [None]
  - HAEMOGLOBIN DECREASED [None]
  - LEUKAEMIA [None]
  - PLATELET COUNT DECREASED [None]
  - PULMONARY OEDEMA [None]
